FAERS Safety Report 7493924-2 (Version None)
Quarter: 2011Q2

REPORT INFORMATION
  Report Type: 
  Country: None (occurrence: None)
  Receive Date: 20110520
  Receipt Date: 20110518
  Transmission Date: 20111010
  Serious: Yes (Other)
  Sender: FDA-Public Use
  Company Number: PL-ROCHE-777935

PATIENT
  Sex: Female
  Weight: 36 kg

DRUGS (1)
  1. BONIVA [Suspect]
     Route: 042
     Dates: start: 20091201, end: 20110419

REACTIONS (1)
  - PYREXIA [None]
